FAERS Safety Report 8557391 (Version 5)
Quarter: 2012Q4

REPORT INFORMATION
  Report Type: 
  Country: GB (occurrence: GB)
  Receive Date: 20120511
  Receipt Date: 20121130
  Transmission Date: 20130627
  Serious: Yes (Death)
  Sender: FDA-Public Use
  Company Number: PHFR2012GB002856

PATIENT
  Age: 54 Year
  Sex: Male

DRUGS (9)
  1. CLOZARIL [Suspect]
     Indication: SCHIZOPHRENIA
     Dosage: 500 mg, UNK
     Route: 048
     Dates: start: 20070520
  2. SULPIRIDE [Concomitant]
     Indication: SCHIZOPHRENIA
     Dosage: 1000 mg, UNK
     Route: 048
     Dates: start: 20070806
  3. DEPAKOTE [Concomitant]
     Indication: SCHIZOPHRENIA
     Dosage: 2250 mg, UNK
     Route: 048
     Dates: start: 2007
  4. TRIHEXYPHENIDYL [Concomitant]
     Indication: EXTRAPYRAMIDAL DISORDER
     Dosage: 3 mg, UNK
     Dates: start: 2007
  5. HYOSCINE HYDROBROMIDE [Concomitant]
     Indication: SALIVARY HYPERSECRETION
     Dosage: 300 ug, UNK
     Route: 048
  6. INSULIN [Concomitant]
  7. RAMIPRIL [Concomitant]
  8. AMLODIPINE [Concomitant]
  9. METFORMIN [Concomitant]

REACTIONS (5)
  - Chronic obstructive pulmonary disease [Fatal]
  - Toxicity to various agents [Fatal]
  - Myocardial ischaemia [Fatal]
  - Sudden death [Fatal]
  - Haemoglobin decreased [Unknown]
